FAERS Safety Report 9401880 (Version 1)
Quarter: 2013Q3

REPORT INFORMATION
  Report Type: Spontaneous
  Country: CO (occurrence: CO)
  Receive Date: 20130716
  Receipt Date: 20130716
  Transmission Date: 20140515
  Serious: Yes (Life-Threatening)
  Sender: FDA-Public Use
  Company Number: CO-009507513-1307COL003136

PATIENT
  Age: 60 Year
  Sex: Female
  Weight: 58 kg

DRUGS (2)
  1. PEG-INTRON [Suspect]
     Indication: HEPATITIS C
     Dosage: 80 MICROGRAM; FREQUENCY UNKNOWN; FORMULATION: AMPULE
     Route: 058
     Dates: start: 20130426, end: 20130628
  2. RIBAVIRIN [Suspect]
     Dosage: 800 MG, UNK
     Route: 048
     Dates: start: 20130426, end: 20130628

REACTIONS (2)
  - Rash [Not Recovered/Not Resolved]
  - Erythema [Not Recovered/Not Resolved]
